APPROVED DRUG PRODUCT: VALACYCLOVIR HYDROCHLORIDE
Active Ingredient: VALACYCLOVIR HYDROCHLORIDE
Strength: EQ 1GM BASE
Dosage Form/Route: TABLET;ORAL
Application: A077478 | Product #002
Applicant: AIPING PHARMACEUTICAL INC
Approved: May 24, 2010 | RLD: No | RS: No | Type: DISCN